FAERS Safety Report 22349794 (Version 2)
Quarter: 2023Q2

REPORT INFORMATION
  Report Type: Spontaneous
  Country: IL (occurrence: IL)
  Receive Date: 20230522
  Receipt Date: 20230609
  Transmission Date: 20230722
  Serious: Yes (Disabling, Other)
  Sender: FDA-Public Use
  Company Number: IL-ARBOR PHARMACEUTICALS, LLC-IL-2023ARB004038

PATIENT
  Age: 44 Year
  Sex: Female

DRUGS (3)
  1. TRIPTODUR [Suspect]
     Active Substance: TRIPTORELIN
     Indication: Product used for unknown indication
     Dosage: ONCE IN EVERY 3 MONTHS (11.25 MG)
     Route: 065
     Dates: start: 20230323
  2. TRIPTODUR [Suspect]
     Active Substance: TRIPTORELIN
  3. TRIPTODUR [Suspect]
     Active Substance: TRIPTORELIN

REACTIONS (5)
  - Pruritus [Unknown]
  - Rash [Unknown]
  - Urethral pain [Unknown]
  - Bone pain [Unknown]
  - Anxiety [Unknown]
